FAERS Safety Report 17418220 (Version 1)
Quarter: 2020Q1

REPORT INFORMATION
  Report Type: Spontaneous
  Country: US (occurrence: US)
  Receive Date: 20200214
  Receipt Date: 20200214
  Transmission Date: 20200409
  Serious: Yes (Life-Threatening, Hospitalization, Disabling)
  Sender: FDA-Public Use
  Company Number: None

PATIENT
  Age: 21 Year
  Sex: Female
  Weight: 69.85 kg

DRUGS (1)
  1. PARAGARD T 380A [Suspect]
     Active Substance: COPPER

REACTIONS (18)
  - Pain [None]
  - Fatigue [None]
  - Gastrointestinal disorder [None]
  - Confusional state [None]
  - Menstruation irregular [None]
  - Vertigo [None]
  - Vaginal discharge [None]
  - Complication of device removal [None]
  - Abdominal distension [None]
  - Alopecia [None]
  - Tinnitus [None]
  - Ovulation pain [None]
  - Disorientation [None]
  - Arthralgia [None]
  - Vaginal odour [None]
  - Foreign body in reproductive tract [None]
  - Urinary tract infection [None]
  - Vaginal infection [None]

NARRATIVE: CASE EVENT DATE: 20200212
